FAERS Safety Report 4762204-8 (Version None)
Quarter: 2005Q3

REPORT INFORMATION
  Report Type: 
  Country: None (occurrence: None)
  Receive Date: 20050906
  Receipt Date: 20050906
  Transmission Date: 20060218
  Serious: Yes (Disabling)
  Sender: FDA-Public Use
  Company Number: None

PATIENT
  Age: 8 Year
  Sex: Female
  Weight: 25.855 kg

DRUGS (1)
  1. DITROPAN XL [Suspect]
     Indication: POLLAKIURIA
     Dosage: 5 MG 1X EACH DAY PO
     Route: 048
     Dates: start: 20041201, end: 20050426

REACTIONS (4)
  - CONFUSIONAL STATE [None]
  - HALLUCINATION [None]
  - OBSESSIVE THOUGHTS [None]
  - PHARMACEUTICAL PRODUCT COMPLAINT [None]
